FAERS Safety Report 5354477-8 (Version None)
Quarter: 2007Q2

REPORT INFORMATION
  Report Type: 
  Country: None (occurrence: None)
  Receive Date: 20070612
  Receipt Date: 20070601
  Transmission Date: 20071010
  Serious: Yes (Hospitalization)
  Sender: FDA-Public Use
  Company Number: US-SANOFI-SYNTHELABO-A03200703470

PATIENT
  Sex: Female
  Weight: 85.26 kg

DRUGS (5)
  1. PLAVIX [Suspect]
     Indication: CEREBROVASCULAR ACCIDENT
     Route: 048
     Dates: start: 20060709, end: 20060101
  2. PLAVIX [Suspect]
     Route: 048
     Dates: start: 20070301
  3. METOPROLOL SUCCINATE [Concomitant]
     Dosage: UNK
     Route: 065
  4. ASPIRIN [Concomitant]
     Route: 065
  5. CLOPIDOGREL [Suspect]
     Indication: CEREBROVASCULAR ACCIDENT
     Route: 048
     Dates: start: 20060101, end: 20070301

REACTIONS (3)
  - BLINDNESS [None]
  - EPISTAXIS [None]
  - RETINAL INFARCTION [None]
